FAERS Safety Report 6790326-9 (Version None)
Quarter: 2010Q2

REPORT INFORMATION
  Report Type: 
  Country: None (occurrence: None)
  Receive Date: 20100624
  Receipt Date: 20100615
  Transmission Date: 20101027
  Serious: Yes (Hospitalization)
  Sender: FDA-Public Use
  Company Number: FR-SANOFI-AVENTIS-2010SA034598

PATIENT
  Age: 92 Year
  Sex: Female

DRUGS (6)
  1. LASIX [Suspect]
     Indication: DRUG USE FOR UNKNOWN INDICATION
     Route: 048
     Dates: start: 20100101, end: 20100211
  2. PERINDOPRIL [Suspect]
     Indication: DRUG USE FOR UNKNOWN INDICATION
     Route: 048
     Dates: start: 20100101, end: 20100211
  3. PERINDOPRIL [Suspect]
     Route: 048
     Dates: start: 20100401
  4. BISOPROLOL [Suspect]
     Indication: DRUG USE FOR UNKNOWN INDICATION
     Route: 048
     Dates: start: 20100101, end: 20100214
  5. BISOPROLOL [Suspect]
     Route: 048
     Dates: start: 20100215
  6. KARDEGIC [Concomitant]
     Indication: DRUG USE FOR UNKNOWN INDICATION
     Route: 048

REACTIONS (3)
  - BRADYCARDIA [None]
  - HYPOTENSION [None]
  - MALAISE [None]
